FAERS Safety Report 4621080-4 (Version None)
Quarter: 2005Q1

REPORT INFORMATION
  Report Type: 
  Country: None (occurrence: None)
  Receive Date: 20050325
  Receipt Date: 20050322
  Transmission Date: 20050727
  Serious: Yes (Other)
  Sender: FDA-Public Use
  Company Number: 2005047144

PATIENT
  Age: 60 Year
  Sex: Female

DRUGS (1)
  1. ATORVASTATIN CALCIUM [Suspect]
     Indication: HYPERCHOLESTEROLAEMIA
     Dosage: 10 MG (10 MG, 1 IN 1 D)

REACTIONS (4)
  - BLOOD CHOLESTEROL DECREASED [None]
  - ENDOMETRIAL CANCER [None]
  - TRANSAMINASES INCREASED [None]
  - VIRAL INFECTION [None]
